FAERS Safety Report 21097033 (Version 2)
Quarter: 2022Q3

REPORT INFORMATION
  Report Type: Spontaneous
  Country: US (occurrence: US)
  Receive Date: 20220718
  Receipt Date: 20220728
  Transmission Date: 20221027
  Serious: Yes (Hospitalization)
  Sender: FDA-Public Use
  Company Number: US-UROGEN PHARMA LTD.-2022-UGN-000076

PATIENT

DRUGS (15)
  1. JELMYTO [Suspect]
     Active Substance: MITOMYCIN
     Indication: Transitional cell cancer of the renal pelvis and ureter
     Dosage: 1 MILLIGRAM (INSTILLATION)
     Dates: start: 20200904, end: 20200904
  2. JELMYTO [Suspect]
     Active Substance: MITOMYCIN
     Dosage: 1 MILLIGRAM (INSTILLATION)
     Dates: start: 20200918, end: 20200918
  3. JELMYTO [Suspect]
     Active Substance: MITOMYCIN
     Dosage: 1 MILLIGRAM (INSTILLATION)
     Dates: start: 20200923, end: 20200923
  4. JELMYTO [Suspect]
     Active Substance: MITOMYCIN
     Dosage: 1 MILLIGRAM (INSTILLATION)
     Dates: start: 20200930, end: 20200930
  5. JELMYTO [Suspect]
     Active Substance: MITOMYCIN
     Dosage: 1 MILLIGRAM (INSTILLATION)
     Dates: start: 20201007, end: 20201007
  6. JELMYTO [Suspect]
     Active Substance: MITOMYCIN
     Dosage: 1 MILLIGRAM (INSTILLATION)
     Dates: start: 20201021, end: 20201021
  7. JELMYTO [Suspect]
     Active Substance: MITOMYCIN
     Dosage: 1 MILLIGRAM (INSTILLATION)
     Dates: start: 20210126, end: 20210126
  8. JELMYTO [Suspect]
     Active Substance: MITOMYCIN
     Dosage: 1 MILLIGRAM (INSTILLATION)
     Dates: start: 20210223, end: 20210223
  9. JELMYTO [Suspect]
     Active Substance: MITOMYCIN
     Dosage: 1 MILLIGRAM (INSTILLATION)
     Dates: start: 20210323, end: 20210323
  10. JELMYTO [Suspect]
     Active Substance: MITOMYCIN
     Dosage: 1 MILLIGRAM (INSTILLATION)
     Dates: start: 20210427, end: 20210427
  11. JELMYTO [Suspect]
     Active Substance: MITOMYCIN
     Dosage: 1 MILLIGRAM (INSTILLATION)
     Dates: start: 20210617, end: 20210617
  12. JELMYTO [Suspect]
     Active Substance: MITOMYCIN
     Dosage: 1 MILLIGRAM (INSTILLATION)
     Dates: start: 20210818, end: 20210818
  13. JELMYTO [Suspect]
     Active Substance: MITOMYCIN
     Dosage: 1 MILLIGRAM (INSTILLATION)
     Dates: start: 20211006, end: 20211006
  14. JELMYTO [Suspect]
     Active Substance: MITOMYCIN
     Dosage: 1 MILLIGRAM (INSTILLATION)
     Dates: start: 20211103, end: 20211103
  15. JELMYTO [Suspect]
     Active Substance: MITOMYCIN
     Dosage: 1 MILLIGRAM (INSTILLATION)
     Dates: start: 20211222, end: 20211222

REACTIONS (1)
  - Adverse event [Unknown]
